FAERS Safety Report 6368291-8 (Version None)
Quarter: 2009Q3

REPORT INFORMATION
  Report Type: 
  Country: None (occurrence: None)
  Receive Date: 20090908
  Receipt Date: 20090824
  Transmission Date: 20100115
  Serious: Yes (Hospitalization)
  Sender: FDA-Public Use
  Company Number: THYM-1001166

PATIENT
  Age: 56 Year
  Sex: Male
  Weight: 82 kg

DRUGS (12)
  1. THYMOGLOBULIN [Suspect]
     Indication: RENAL TRANSPLANT
     Dosage: 100 MG, QD, INTRAVENOUS
     Route: 042
     Dates: start: 20090721, end: 20090729
  2. CELLCEPT [Concomitant]
  3. TACROLIMUS [Concomitant]
  4. SOLU-MEDROL [Concomitant]
  5. PREDNISONE TAB [Concomitant]
  6. METOPROLOL (METOPROLOL) [Concomitant]
  7. NYSTATIN [Concomitant]
  8. PRILOSEC [Concomitant]
  9. COLACE (DOCUSATE SODIUM) [Concomitant]
  10. SODIUM BIPHOSPHONATE (SODIUM BIPHOSPHONATE) [Concomitant]
  11. OXYCODONE HCL [Concomitant]
  12. TYLENOL [Concomitant]

REACTIONS (3)
  - BLOOD CREATININE INCREASED [None]
  - DRUG LEVEL INCREASED [None]
  - HYPONATRAEMIA [None]
